FAERS Safety Report 6073253-4 (Version None)
Quarter: 2009Q1

REPORT INFORMATION
  Report Type: 
  Country: None (occurrence: None)
  Receive Date: 20090211
  Receipt Date: 20090107
  Transmission Date: 20090719
  Serious: No
  Sender: FDA-Public Use
  Company Number: A0762513A

PATIENT
  Age: 60 Year
  Sex: Female

DRUGS (2)
  1. ALTABAX [Suspect]
     Indication: DRUG USE FOR UNKNOWN INDICATION
     Route: 045
     Dates: start: 20081101
  2. NONE [Concomitant]

REACTIONS (1)
  - DRUG ADMINISTRATION ERROR [None]
